FAERS Safety Report 7275110-4 (Version None)
Quarter: 2011Q1

REPORT INFORMATION
  Report Type: 
  Country: None (occurrence: None)
  Receive Date: 20110204
  Receipt Date: 20110124
  Transmission Date: 20110831
  Serious: Yes (Other)
  Sender: FDA-Public Use
  Company Number: PHHY2011US03605

PATIENT
  Sex: Male
  Weight: 81.179 kg

DRUGS (12)
  1. INSULIN [Concomitant]
  2. DIOVAN [Suspect]
     Indication: CARDIAC FAILURE
     Dosage: 40 MG (1 PER DAY)
     Route: 048
     Dates: start: 20101128, end: 20110114
  3. LANTUS [Concomitant]
     Dosage: 1 DF, QD
     Route: 058
  4. COREG [Concomitant]
     Dosage: 1 DF, BID
     Route: 048
  5. DIPYRIDAMOLE [Concomitant]
     Dosage: 1 DF, BID
     Route: 048
  6. HUMALOG [Concomitant]
     Dosage: 1 DF, QD
     Route: 058
  7. KLOR-CON [Concomitant]
     Dosage: 1 DF, BID
     Route: 048
  8. ASPIRIN [Concomitant]
     Dosage: 1 DF, QD
     Route: 048
  9. ZOCOR [Concomitant]
     Dosage: 1 DF, QD
     Route: 048
  10. COUMADIN [Concomitant]
     Dosage: 1 DF, QD
     Route: 048
  11. DIOVAN [Suspect]
     Indication: CARDIOMYOPATHY
  12. LASIX [Concomitant]
     Dosage: 1 DF, BID
     Route: 048

REACTIONS (12)
  - DYSPHAGIA [None]
  - ABDOMINAL DISTENSION [None]
  - PHARYNGEAL OEDEMA [None]
  - SWOLLEN TONGUE [None]
  - LIP SWELLING [None]
  - DRY MOUTH [None]
  - BRONCHOSPASM [None]
  - DYSARTHRIA [None]
  - SWELLING FACE [None]
  - DYSPNOEA [None]
  - EYE SWELLING [None]
  - ABDOMINAL PAIN [None]
